FAERS Safety Report 18952644 (Version 1)
Quarter: 2021Q1

REPORT INFORMATION
  Report Type: Spontaneous
  Country: US (occurrence: US)
  Receive Date: 20210301
  Receipt Date: 20210301
  Transmission Date: 20210420
  Serious: Yes (Hospitalization, Other)
  Sender: FDA-Public Use
  Company Number: US-DRREDDYS-USA/USA/21/0132310

PATIENT
  Age: 42 Year
  Sex: Female

DRUGS (7)
  1. VEDOLIZUMAB [Concomitant]
     Active Substance: VEDOLIZUMAB
     Indication: CROHN^S DISEASE
  2. ALLOPURINOL. [Suspect]
     Active Substance: ALLOPURINOL
     Indication: CROHN^S DISEASE
  3. AZATHIOPRINE. [Interacting]
     Active Substance: AZATHIOPRINE
     Indication: CROHN^S DISEASE
  4. AZATHIOPRINE. [Interacting]
     Active Substance: AZATHIOPRINE
     Indication: MIXED CONNECTIVE TISSUE DISEASE
  5. PREDNISONE. [Concomitant]
     Active Substance: PREDNISONE
     Indication: CROHN^S DISEASE
  6. VEDOLIZUMAB [Concomitant]
     Active Substance: VEDOLIZUMAB
     Indication: MIXED CONNECTIVE TISSUE DISEASE
  7. PREDNISONE. [Concomitant]
     Active Substance: PREDNISONE
     Indication: MIXED CONNECTIVE TISSUE DISEASE

REACTIONS (4)
  - Aplasia pure red cell [Recovering/Resolving]
  - Drug interaction [Recovering/Resolving]
  - Myelosuppression [Recovering/Resolving]
  - Anaemia macrocytic [Recovering/Resolving]
